FAERS Safety Report 23218314 (Version 2)
Quarter: 2023Q4

REPORT INFORMATION
  Report Type: Spontaneous
  Country: US (occurrence: US)
  Receive Date: 20231122
  Receipt Date: 20231211
  Transmission Date: 20240109
  Serious: Yes (Hospitalization, Other)
  Sender: FDA-Public Use
  Company Number: US-MIRATI-MT2023PM04977

PATIENT
  Sex: Female

DRUGS (27)
  1. KRAZATI [Suspect]
     Active Substance: ADAGRASIB
     Indication: Lung neoplasm malignant
     Dosage: 600 MG, BID
     Route: 048
     Dates: start: 20230807, end: 20230928
  2. KRAZATI [Suspect]
     Active Substance: ADAGRASIB
     Dosage: 400 MG, BID
     Route: 048
     Dates: start: 20231007
  3. ACYCLOVIR [Concomitant]
     Active Substance: ACYCLOVIR
     Dosage: 400 MG, BID
     Route: 048
  4. AUGMENTIN [Concomitant]
     Active Substance: AMOXICILLIN\CLAVULANATE POTASSIUM
     Dosage: 875-125 MG, 1 TABLET BY MOUTH BID FOR 14 DAYS
     Route: 048
  5. ATENOLOL [Concomitant]
     Active Substance: ATENOLOL
     Dosage: 25 MG, QD
     Route: 048
  6. BIOTIN [Concomitant]
     Active Substance: BIOTIN
     Dosage: 5 MG
  7. CHOLESTYRAMINE [Concomitant]
     Active Substance: CHOLESTYRAMINE
     Dosage: 4 G, TID
     Route: 048
  8. CLOBETASOL [Concomitant]
     Active Substance: CLOBETASOL
     Dosage: 0.05 %, APPLY TOPICALLY IF NEEDED
     Route: 061
  9. DEXAMETHASONE [Concomitant]
     Active Substance: DEXAMETHASONE
     Dosage: 8 MG, TAKE 2 TABLETS (8 MG) ONE TIME FOR 1 DOSE
     Route: 048
  10. LOMOTIL [Concomitant]
     Active Substance: ATROPINE SULFATE\DIPHENOXYLATE HYDROCHLORIDE
     Indication: Diarrhoea
     Dosage: 2.5-0.025 MG TABLET, 1 TAB 4 TIMES A DAY AS NEEDED
     Route: 048
  11. LEXAPRO [Concomitant]
     Active Substance: ESCITALOPRAM OXALATE
     Dosage: 10 MG, QD
     Route: 048
  12. ADVAIR HFA [Concomitant]
     Active Substance: FLUTICASONE PROPIONATE\SALMETEROL XINAFOATE
     Dosage: 250-50 MCG/PUFF DISKUS INHALER, INHALE 1 PUFF 2 TIMES A DAY, RINSE MOUTH WITH WATER AFTER USE
  13. FOLIC ACID [Concomitant]
     Active Substance: FOLIC ACID
     Dosage: 800 UG, QD
     Route: 048
  14. LASIX [Concomitant]
     Active Substance: FUROSEMIDE
     Dosage: 20 MG, PRN
     Route: 048
  15. NEURONTIN [Concomitant]
     Active Substance: GABAPENTIN
     Dosage: 600 MG, 4 TIMES A DAY
     Route: 048
  16. XALATAN [Concomitant]
     Active Substance: LATANOPROST
     Dosage: 0.005 %, ADMINISTER INTO AFFECTED EYES AT BEDTIME
     Route: 047
  17. IMODIUM A-D [Concomitant]
     Active Substance: LOPERAMIDE HYDROCHLORIDE
  18. MELATONIN [Concomitant]
     Active Substance: MELATONIN
     Dosage: 10 MG, AT BEDTIME
     Route: 048
  19. Vitrum [Concomitant]
  20. MYCOSTATIN [Concomitant]
     Active Substance: NYSTATIN
     Dosage: 30 G, BID, APPLY TO AFFECTED AREA ON SKIN
     Route: 061
  21. COMPAZINE [Concomitant]
     Active Substance: PROCHLORPERAZINE MALEATE
     Indication: Nausea
     Dosage: 10 MG, PRN, TAKE ONE TAB PRIOR TO EACH ORAL CHEMO DOSE AND UP TO EVERY 6 HOURS PRN
     Route: 048
  22. COMPAZINE [Concomitant]
     Active Substance: PROCHLORPERAZINE MALEATE
     Indication: Vomiting
  23. MAXALT [Concomitant]
     Active Substance: RIZATRIPTAN BENZOATE
     Dosage: 10 MG, MAY REPEAT IN 2 HOURS IF UNRESOLVED. DO NOT EXCEED 30 MG IN 24  HOURS IF UNRESOLVED
  24. ULTRAM [Concomitant]
     Active Substance: TRAMADOL HYDROCHLORIDE
     Dosage: 100 MG, BID
     Route: 048
  25. DESYREL [Concomitant]
     Active Substance: TRAZODONE HYDROCHLORIDE
     Indication: Insomnia
     Dosage: 100 MG, PRN, T TAB AT BEDTIME
     Route: 048
  26. VALERIAN [Concomitant]
     Active Substance: VALERIAN
     Dosage: 100 MG AT BEDTIME
     Route: 048
  27. OCTREOTIDE ACETATE [Concomitant]
     Active Substance: OCTREOTIDE ACETATE
     Indication: Diarrhoea
     Dosage: INJECTIONS Q4W

REACTIONS (13)
  - Surgery [Unknown]
  - Renal failure [Unknown]
  - Pancytopenia [Recovering/Resolving]
  - Syncope [Unknown]
  - Fluid intake reduced [Unknown]
  - Palpitations [Unknown]
  - Neoplasm progression [Unknown]
  - Dyspnoea [Unknown]
  - Fatigue [Not Recovered/Not Resolved]
  - Blood creatinine increased [Recovered/Resolved]
  - Bone pain [Unknown]
  - Asthenia [Unknown]
  - Asthenia [Unknown]

NARRATIVE: CASE EVENT DATE: 20230928
